FAERS Safety Report 9201904 (Version 1)
Quarter: 2013Q2

REPORT INFORMATION
  Report Type: Spontaneous
  Country: US (occurrence: US)
  Receive Date: 20130401
  Receipt Date: 20130401
  Transmission Date: 20140414
  Serious: Yes (Hospitalization, Other)
  Sender: FDA-Public Use
  Company Number: US-ELI_LILLY_AND_COMPANY-US201303009224

PATIENT
  Age: 84 Year
  Sex: Female

DRUGS (3)
  1. EFFIENT [Suspect]
     Indication: STENT PLACEMENT
     Dosage: 60 MG, SINGLE
  2. ANGIOMAX [Concomitant]
  3. REOPRO [Concomitant]

REACTIONS (4)
  - Thrombosis in device [Unknown]
  - Post procedural haemorrhage [Unknown]
  - Rectal haemorrhage [Unknown]
  - Haematemesis [Unknown]
